FAERS Safety Report 13465997 (Version 5)
Quarter: 2018Q4

REPORT INFORMATION
  Report Type: Spontaneous
  Country: US (occurrence: US)
  Receive Date: 20170421
  Receipt Date: 20181203
  Transmission Date: 20190204
  Serious: No
  Sender: FDA-Public Use
  Company Number: US-PFIZER INC-2016570806

PATIENT
  Age: 60 Year
  Sex: Female
  Weight: 96 kg

DRUGS (6)
  1. LYRICA [Concomitant]
     Active Substance: PREGABALIN
     Indication: FIBROMYALGIA
     Dosage: UNK, 2X/DAY, (150 IN THE MORNING AND 225 AT NIGHT.^)
  2. CELEBREX [Suspect]
     Active Substance: CELECOXIB
     Indication: RESTLESS LEGS SYNDROME
     Dosage: 200 MG, 1X/DAY
     Route: 048
  3. CELEBREX [Suspect]
     Active Substance: CELECOXIB
     Indication: INFLAMMATION
  4. CELEBREX [Suspect]
     Active Substance: CELECOXIB
     Indication: ARTHRITIS
  5. CELEBREX [Suspect]
     Active Substance: CELECOXIB
     Indication: BACK PAIN
  6. CELEBREX [Suspect]
     Active Substance: CELECOXIB
     Indication: FIBROMYALGIA

REACTIONS (3)
  - Swelling [Unknown]
  - Pain in extremity [Unknown]
  - Hypokinesia [Unknown]
